FAERS Safety Report 9500332 (Version 1)
Quarter: 2013Q3

REPORT INFORMATION
  Report Type: Spontaneous
  Country: US (occurrence: None)
  Receive Date: 20130904
  Receipt Date: 20130904
  Transmission Date: 20140515
  Serious: Yes (Other)
  Sender: FDA-Public Use
  Company Number: None

PATIENT
  Age: 41 Day
  Sex: Male
  Weight: 70.31 kg

DRUGS (5)
  1. OPANA ER [Suspect]
     Indication: BACK PAIN
     Dosage: 1 EVERY 12 HRS TWICE DAILY TAKEN BY MOUTH
     Route: 048
     Dates: start: 20130826, end: 20130901
  2. OPANA ER [Suspect]
     Indication: SURGERY
     Dosage: 1 EVERY 12 HRS TWICE DAILY TAKEN BY MOUTH
     Route: 048
     Dates: start: 20130826, end: 20130901
  3. OPANA ER [Suspect]
     Dosage: 1 EVERY 12 HRS TWICE DAILY TAKEN BY MOUTH
     Route: 048
     Dates: start: 20130826, end: 20130901
  4. CHANTEIX [Concomitant]
  5. NEXIUM [Concomitant]

REACTIONS (2)
  - Micturition disorder [None]
  - Urine flow decreased [None]
